FAERS Safety Report 15990991 (Version 1)
Quarter: 2019Q1

REPORT INFORMATION
  Report Type: Spontaneous
  Country: FR (occurrence: FR)
  Receive Date: 20190221
  Receipt Date: 20190221
  Transmission Date: 20190418
  Serious: Yes (Hospitalization)
  Sender: FDA-Public Use
  Company Number: FR-BAYER-2019-036354

PATIENT
  Age: 17 Year
  Sex: Male
  Weight: 66 kg

DRUGS (1)
  1. ACETYLSALICYLIC ACID (PAIN AND FEVER) [Suspect]
     Active Substance: ASPIRIN
     Indication: SUICIDE ATTEMPT
     Dosage: 30 G, UNK
     Route: 048
     Dates: start: 20190130, end: 20190130

REACTIONS (5)
  - Toxicity to various agents [Recovered/Resolved]
  - Tachycardia [Recovered/Resolved]
  - Hypokalaemia [Recovered/Resolved]
  - Nausea [Recovered/Resolved]
  - Tinnitus [Recovered/Resolved]

NARRATIVE: CASE EVENT DATE: 20190130
